FAERS Safety Report 5272161-6 (Version None)
Quarter: 2007Q1

REPORT INFORMATION
  Report Type: 
  Country: None (occurrence: None)
  Receive Date: 20070320
  Receipt Date: 20070320
  Transmission Date: 20070707
  Serious: Yes (Other)
  Sender: FDA-Public Use
  Company Number: None

PATIENT
  Sex: Female
  Weight: 65.7716 kg

DRUGS (1)
  1. ROZEREM [Suspect]
     Indication: INSOMNIA

REACTIONS (2)
  - FATIGUE [None]
  - FEELING ABNORMAL [None]
